FAERS Safety Report 24464206 (Version 2)
Quarter: 2024Q4

REPORT INFORMATION
  Report Type: Spontaneous
  Country: US (occurrence: US)
  Receive Date: 20241018
  Receipt Date: 20241024
  Transmission Date: 20250115
  Serious: Yes (Other)
  Sender: PIERRE FABRE MEDICAMENT
  Company Number: US-PFM-2024-05646

PATIENT
  Age: 77 Year
  Sex: Male

DRUGS (4)
  1. PROPRANOLOL [Suspect]
     Active Substance: PROPRANOLOL HYDROCHLORIDE
     Indication: Essential tremor
     Dosage: UNK
     Route: 065
  2. PROPRANOLOL [Suspect]
     Active Substance: PROPRANOLOL HYDROCHLORIDE
     Indication: Off label use
  3. PRIMIDONE [Concomitant]
     Active Substance: PRIMIDONE
     Indication: Essential tremor
     Dosage: UNK
     Route: 065
  4. TOPIRAMATE [Concomitant]
     Active Substance: TOPIRAMATE
     Indication: Essential tremor
     Dosage: UNK
     Route: 065

REACTIONS (5)
  - Erectile dysfunction [Unknown]
  - Bradycardia [Unknown]
  - Product use issue [Unknown]
  - Product use in unapproved indication [Unknown]
  - Off label use [Unknown]
